FAERS Safety Report 7927997-7 (Version None)
Quarter: 2011Q4

REPORT INFORMATION
  Report Type: 
  Country: None (occurrence: None)
  Receive Date: 20111117
  Receipt Date: 20111117
  Transmission Date: 20120403
  Serious: Yes (Other)
  Sender: FDA-Public Use
  Company Number: None

PATIENT
  Sex: Female
  Weight: 55.7924 kg

DRUGS (1)
  1. VITAMIN [Suspect]

REACTIONS (3)
  - NAUSEA [None]
  - PAIN [None]
  - DIARRHOEA [None]
